FAERS Safety Report 8435667-4 (Version None)
Quarter: 2012Q2

REPORT INFORMATION
  Report Type: 
  Country: None (occurrence: None)
  Receive Date: 20120614
  Receipt Date: 20120606
  Transmission Date: 20120825
  Serious: Yes (Death)
  Sender: FDA-Public Use
  Company Number: DE-UCBSA-000904

PATIENT
  Age: 74 Year
  Sex: Male
  Weight: 120 kg

DRUGS (22)
  1. TORSEMIDE [Concomitant]
  2. PK LEVO [Concomitant]
     Dosage: 100/25 MG THREE TIMES DAILY
     Dates: start: 20070908, end: 20071111
  3. PK LEVO [Concomitant]
     Dosage: 100/25 MG FOUR TIMES DAILY
     Dates: start: 20071112, end: 20080808
  4. MARCUMAR [Concomitant]
     Indication: DEEP VEIN THROMBOSIS
     Dates: start: 20040101, end: 20081117
  5. STALEVO 100 [Concomitant]
     Indication: PARKINSON'S DISEASE
     Dosage: 100/25/200 MG
     Dates: start: 20080809, end: 20081126
  6. CALCIUM BRAUSE [Concomitant]
  7. SPIRIVA [Concomitant]
  8. AMLODIPINE [Concomitant]
     Indication: HYPERTENSION
     Dates: start: 20040101, end: 20081126
  9. HCT RATIO [Concomitant]
     Indication: OEDEMA
     Dates: start: 20040101, end: 20081126
  10. ALLOPURINOL [Concomitant]
  11. NEUPRO [Suspect]
     Route: 062
     Dates: start: 20061211, end: 20081111
  12. RAMIPRIL [Concomitant]
  13. NEUPRO [Suspect]
     Dates: start: 20081112, end: 20081126
  14. PK LEVO [Concomitant]
     Indication: PARKINSON'S DISEASE
     Dosage: 100/25 MG 1/2 - 1/2 - 1/2
     Dates: start: 20060928, end: 20070907
  15. RAMIPRIL [Concomitant]
     Indication: HYPERTENSION
     Dates: start: 20040101, end: 20081126
  16. TORSEMIDE [Concomitant]
     Indication: HYPERTENSION
     Dates: start: 20040101, end: 20081126
  17. AZILECT [Concomitant]
     Indication: PARKINSON'S DISEASE
     Dates: start: 20080611, end: 20081126
  18. NEUPRO [Suspect]
     Indication: PARKINSON'S DISEASE
     Dosage: 1/2
     Route: 062
     Dates: start: 20061127, end: 20061210
  19. PANTOPRAZOLE [Concomitant]
  20. ERGOCALCIFEROL [Concomitant]
  21. LOFTAN [Concomitant]
  22. BRONCHORETARD [Concomitant]

REACTIONS (2)
  - MULTI-ORGAN FAILURE [None]
  - CARDIAC FAILURE [None]
